FAERS Safety Report 10526093 (Version 2)
Quarter: 2014Q4

REPORT INFORMATION
  Report Type: Spontaneous
  Country: FR (occurrence: FR)
  Receive Date: 20141017
  Receipt Date: 20141017
  Transmission Date: 20150528
  Serious: Yes (Death, Life-Threatening, Hospitalization)
  Sender: FDA-Public Use
  Company Number: FR-ASTRAZENECA-2014SE28525

PATIENT
  Age: 29345 Day
  Sex: Male

DRUGS (2)
  1. KARDEGIC [Suspect]
     Active Substance: ASPIRIN LYSINE
     Indication: MYOCARDIAL INFARCTION
     Route: 048
     Dates: start: 201403
  2. BRILIQUE [Suspect]
     Active Substance: TICAGRELOR
     Indication: MYOCARDIAL INFARCTION
     Route: 048
     Dates: start: 201403

REACTIONS (5)
  - Enuresis [Unknown]
  - Mouth haemorrhage [Unknown]
  - Cerebral haematoma [Fatal]
  - Haemodynamic instability [Unknown]
  - Coma [Unknown]

NARRATIVE: CASE EVENT DATE: 20140417
